FAERS Safety Report 8795441 (Version 1)
Quarter: 2012Q4

REPORT INFORMATION
  Report Type: 
  Country: US (occurrence: US)
  Receive Date: 20120917
  Receipt Date: 20120917
  Transmission Date: 20130627
  Serious: No
  Sender: FDA-Public Use
  Company Number: US-ASTRAZENECA-2012SE65786

PATIENT
  Age: 67 Year
  Sex: Female
  Weight: 71.7 kg

DRUGS (3)
  1. NEXIUM [Suspect]
     Indication: GASTROOESOPHAGEAL REFLUX DISEASE
     Route: 048
  2. OMEPRAZOLE [Suspect]
     Route: 048
  3. PREVACID [Suspect]
     Route: 065

REACTIONS (2)
  - Nausea [Unknown]
  - Intentional drug misuse [Unknown]
